FAERS Safety Report 15560166 (Version 1)
Quarter: 2018Q4

REPORT INFORMATION
  Report Type: Spontaneous
  Country: BE (occurrence: BE)
  Receive Date: 20181029
  Receipt Date: 20181029
  Transmission Date: 20190205
  Serious: Yes (Hospitalization)
  Sender: FDA-Public Use
  Company Number: BE-ROCHE-2205302

PATIENT
  Sex: Male

DRUGS (4)
  1. ELOCOM [Concomitant]
     Active Substance: MOMETASONE FUROATE
     Indication: TRANSITIONAL CELL CARCINOMA METASTATIC
  2. ZYRTEC [Concomitant]
     Active Substance: CETIRIZINE HYDROCHLORIDE
     Indication: TRANSITIONAL CELL CARCINOMA METASTATIC
  3. TECENTRIQ [Suspect]
     Active Substance: ATEZOLIZUMAB
     Indication: TRANSITIONAL CELL CARCINOMA METASTATIC
     Route: 042
     Dates: start: 201807, end: 201810
  4. SOLU-MEDROL [Concomitant]
     Active Substance: METHYLPREDNISOLONE SODIUM SUCCINATE
     Indication: TRANSITIONAL CELL CARCINOMA METASTATIC

REACTIONS (5)
  - Diarrhoea [Unknown]
  - Dehydration [Unknown]
  - Rash [Unknown]
  - Pruritus [Unknown]
  - Colitis [Unknown]

NARRATIVE: CASE EVENT DATE: 201810
